FAERS Safety Report 14879505 (Version 2)
Quarter: 2018Q2

REPORT INFORMATION
  Report Type: Report from Study
  Country: US (occurrence: US)
  Receive Date: 20180511
  Receipt Date: 20180524
  Transmission Date: 20180711
  Serious: Yes (Other)
  Sender: FDA-Public Use
  Company Number: US-AMGEN-USASL2018062695

PATIENT
  Age: 80 Year
  Sex: Female
  Weight: 45.2 kg

DRUGS (1)
  1. ENBREL [Suspect]
     Active Substance: ETANERCEPT
     Indication: PRODUCT USED FOR UNKNOWN INDICATION
     Dosage: 50 MG, UNK
     Route: 065
     Dates: start: 20180312, end: 20180515

REACTIONS (2)
  - Rheumatoid arthritis [Unknown]
  - Underdose [Unknown]

NARRATIVE: CASE EVENT DATE: 2018
